FAERS Safety Report 5003783-5 (Version None)
Quarter: 2006Q2

REPORT INFORMATION
  Report Type: 
  Country: None (occurrence: None)
  Receive Date: 20060516
  Receipt Date: 20050926
  Transmission Date: 20061013
  Serious: Yes (Hospitalization)
  Sender: FDA-Public Use
  Company Number: US-MERCK-0509USA04135

PATIENT
  Age: 71 Year
  Sex: Female
  Weight: 76 kg

DRUGS (4)
  1. VIOXX [Suspect]
     Indication: ARTHRALGIA
     Route: 048
     Dates: end: 20040501
  2. ATENOLOL [Concomitant]
     Route: 065
  3. BENAZEPRIL HYDROCHLORIDE [Concomitant]
     Route: 065
  4. ZOCOR [Concomitant]
     Route: 065

REACTIONS (1)
  - MYOCARDIAL INFARCTION [None]
